FAERS Safety Report 13851944 (Version 3)
Quarter: 2017Q3

REPORT INFORMATION
  Report Type: Report from Study
  Country: DE (occurrence: DE)
  Receive Date: 20170810
  Receipt Date: 20170829
  Transmission Date: 20171127
  Serious: Yes (Hospitalization, Disabling)
  Sender: FDA-Public Use
  Company Number: DE-ROCHE-1955195

PATIENT
  Age: 77 Year
  Sex: Male
  Weight: 95 kg

DRUGS (9)
  1. ELIQUIS [Concomitant]
     Active Substance: APIXABAN
     Indication: DEEP VEIN THROMBOSIS
     Route: 048
     Dates: start: 20170729
  2. KREON [Concomitant]
     Active Substance: PANCRELIPASE
     Route: 048
     Dates: start: 20170801, end: 20170801
  3. XARELTO [Concomitant]
     Active Substance: RIVAROXABAN
     Indication: DEEP VEIN THROMBOSIS
     Route: 048
     Dates: start: 20170628
  4. CLEXANE [Concomitant]
     Active Substance: ENOXAPARIN SODIUM
     Indication: DEEP VEIN THROMBOSIS
     Route: 058
     Dates: start: 20170608
  5. ATEZOLIZUMAB. [Suspect]
     Active Substance: ATEZOLIZUMAB
     Indication: TRANSITIONAL CELL CARCINOMA
     Route: 042
     Dates: start: 20170508, end: 20170718
  6. CARMEN (GERMANY) [Concomitant]
     Active Substance: LERCANIDIPINE HYDROCHLORIDE
     Indication: HYPERTENSION
     Route: 048
  7. XELEVIA [Concomitant]
     Active Substance: SITAGLIPTIN PHOSPHATE
     Indication: DIABETES MELLITUS
     Route: 048
  8. LANTUS [Concomitant]
     Active Substance: INSULIN GLARGINE
     Indication: DIABETES MELLITUS
     Route: 065
  9. MACROGOL [Concomitant]
     Active Substance: POLYETHYLENE GLYCOLS
     Indication: PROPHYLAXIS
     Dosage: DOSE: 1 BAG
     Route: 048
     Dates: start: 201708

REACTIONS (9)
  - Intervertebral disc protrusion [Not Recovered/Not Resolved]
  - Lymphoedema [Not Recovered/Not Resolved]
  - Influenza like illness [Recovering/Resolving]
  - Musculoskeletal discomfort [Recovering/Resolving]
  - Radiation neuropathy [Not Recovered/Not Resolved]
  - Flank pain [Recovered/Resolved]
  - Nausea [Unknown]
  - Motor dysfunction [Not Recovered/Not Resolved]
  - Pain [Recovering/Resolving]

NARRATIVE: CASE EVENT DATE: 20170522
